FAERS Safety Report 14673592 (Version 1)
Quarter: 2018Q1

REPORT INFORMATION
  Report Type: Spontaneous
  Country: US (occurrence: US)
  Receive Date: 20180323
  Receipt Date: 20180323
  Transmission Date: 20180509
  Serious: No
  Sender: FDA-Public Use
  Company Number: US-EISAI MEDICAL RESEARCH-EC-2018-037018

PATIENT
  Age: 20 Year
  Sex: Female
  Weight: 45 kg

DRUGS (3)
  1. PILOCARPINE. [Suspect]
     Active Substance: PILOCARPINE
     Indication: SJOGREN^S SYNDROME
     Dosage: 5 MG
     Route: 048
     Dates: start: 201802, end: 201803
  2. PILOCARPINE. [Suspect]
     Active Substance: PILOCARPINE
     Dosage: 1.25 MG
     Route: 048
     Dates: start: 201803, end: 201803
  3. PILOCARPINE. [Suspect]
     Active Substance: PILOCARPINE
     Dosage: 2.5 MG
     Route: 048
     Dates: start: 201803

REACTIONS (4)
  - Intentional underdose [Recovered/Resolved]
  - Dehydration [Recovered/Resolved]
  - Hyperhidrosis [Recovered/Resolved]
  - Muscle spasms [Recovered/Resolved]

NARRATIVE: CASE EVENT DATE: 20180309
